FAERS Safety Report 6444898-4 (Version None)
Quarter: 2009Q4

REPORT INFORMATION
  Report Type: 
  Country: None (occurrence: None)
  Receive Date: 20091110
  Receipt Date: 20090925
  Transmission Date: 20100525
  Serious: No
  Sender: FDA-Public Use
  Company Number: 1000009153

PATIENT
  Age: 51 Year
  Sex: Female

DRUGS (5)
  1. SAVELLA [Suspect]
     Indication: FIBROMYALGIA
     Dosage: 50 MG (50 MG); 100 MG (50 MG, 2 IN 1 D)
     Dates: start: 20090911, end: 20090917
  2. SAVELLA [Suspect]
     Indication: FIBROMYALGIA
     Dosage: 50 MG (50 MG); 100 MG (50 MG, 2 IN 1 D)
     Dates: start: 20090918
  3. ELAVIL [Concomitant]
  4. LORTAB [Concomitant]
  5. VITAMINS [Concomitant]

REACTIONS (3)
  - BLOOD PRESSURE INCREASED [None]
  - HEADACHE [None]
  - NAUSEA [None]
